FAERS Safety Report 4689664-5 (Version None)
Quarter: 2005Q2

REPORT INFORMATION
  Report Type: 
  Country: None (occurrence: None)
  Receive Date: 20050608
  Receipt Date: 20050316
  Transmission Date: 20051028
  Serious: No
  Sender: FDA-Public Use
  Company Number: 2005-BP-04448BP

PATIENT
  Sex: Female

DRUGS (7)
  1. SPIRIVA [Suspect]
     Indication: ASTHMA
     Dosage: 18 MCG (18 MCG, QD), IH
     Route: 055
     Dates: start: 20050216
  2. ADVAIR DISKUS 100/50 [Concomitant]
  3. MAXAIR [Concomitant]
  4. SINGULAIR [Concomitant]
  5. FLOVENT [Concomitant]
  6. PREDNISONE TAB [Concomitant]
  7. XOLAIR [Concomitant]

REACTIONS (3)
  - DRY MOUTH [None]
  - DYSPHONIA [None]
  - LARYNGITIS [None]
